FAERS Safety Report 8329446-6 (Version None)
Quarter: 2012Q2

REPORT INFORMATION
  Report Type: 
  Country: None (occurrence: None)
  Receive Date: 20120502
  Receipt Date: 20120420
  Transmission Date: 20120825
  Serious: Yes (Other)
  Sender: FDA-Public Use
  Company Number: JP-ROCHE-1064160

PATIENT
  Age: 35 Year
  Sex: Male

DRUGS (16)
  1. OMALIZUMAB [Suspect]
     Indication: ASTHMA
     Route: 058
     Dates: start: 20100401
  2. FLUTICASONE PROPIONATE/SALMETEROL [Concomitant]
     Dates: start: 20091224
  3. ALVESCO [Concomitant]
  4. MEPTIN [Concomitant]
  5. ERYTHROCIN [Concomitant]
  6. HOKUNALIN [Concomitant]
  7. SPIRIVA [Concomitant]
  8. QVAR 40 [Concomitant]
     Dates: start: 20090401, end: 20091224
  9. TALION (JAPAN) [Concomitant]
  10. NASONEX [Concomitant]
  11. MUCODYNE [Concomitant]
  12. UNIPHYL [Concomitant]
  13. CLARITHROMYCIN [Concomitant]
  14. SEREVENT [Concomitant]
  15. MONTELUKAST SODIUM [Concomitant]
  16. RABEPRAZOLE SODIUM [Concomitant]

REACTIONS (3)
  - SINUSITIS [None]
  - OTITIS MEDIA [None]
  - EOSINOPHILIA [None]
